FAERS Safety Report 23332746 (Version 1)
Quarter: 2023Q4

REPORT INFORMATION
  Report Type: Spontaneous
  Country: DE (occurrence: DE)
  Receive Date: 20231222
  Receipt Date: 20231222
  Transmission Date: 20240109
  Serious: Yes (Other)
  Sender: FDA-Public Use
  Company Number: DE-TAKEDA-2023TUS102957

PATIENT
  Age: 25 Year
  Sex: Female

DRUGS (5)
  1. ENTYVIO [Suspect]
     Active Substance: VEDOLIZUMAB
     Indication: Crohn^s disease
     Dosage: UNK UNK, Q4WEEKS
     Route: 065
  2. ENTYVIO [Suspect]
     Active Substance: VEDOLIZUMAB
     Indication: Crohn^s disease
     Dosage: UNK UNK, Q2WEEKS
     Route: 058
  3. BUDESONIDE [Concomitant]
     Active Substance: BUDESONIDE
     Dosage: UNK UNK, TID
  4. Salofalk [Concomitant]
     Dosage: UNK UNK, QD
  5. OZEMPIC [Concomitant]
     Active Substance: SEMAGLUTIDE
     Dosage: UNK

REACTIONS (8)
  - Haematochezia [Unknown]
  - Diarrhoea [Unknown]
  - Nervousness [Unknown]
  - Panic attack [Unknown]
  - Alopecia [Unknown]
  - Weight decreased [Unknown]
  - Back pain [Unknown]
  - Nausea [Unknown]
